FAERS Safety Report 12775095 (Version 1)
Quarter: 2016Q3

REPORT INFORMATION
  Report Type: Spontaneous
  Country: US (occurrence: US)
  Receive Date: 20160923
  Receipt Date: 20160923
  Transmission Date: 20161109
  Serious: No
  Sender: FDA-Public Use
  Company Number: US-PFIZER INC-3047717

PATIENT
  Age: 67 Year
  Sex: Female

DRUGS (18)
  1. CARBOPLATIN. [Suspect]
     Active Substance: CARBOPLATIN
     Indication: CHEMOTHERAPY
     Dosage: UNK, FREQ: 1 WEEK; INTERVAL: 3
     Dates: start: 20140822, end: 20141023
  2. ALIMTA [Concomitant]
     Active Substance: PEMETREXED DISODIUM
     Indication: PRODUCT USED FOR UNKNOWN INDICATION
     Dosage: UNK
  3. METOPROLOL. [Concomitant]
     Active Substance: METOPROLOL
     Indication: PRODUCT USED FOR UNKNOWN INDICATION
     Dosage: 25 MG, UNK
     Dates: start: 20150101
  4. RESTASIS [Concomitant]
     Active Substance: CYCLOSPORINE
     Indication: DRY EYE
     Dosage: 1 DF, DAILY DOSAGE 2 DF, MORNING AND NIGHT, FREQ: 2 DAY; INTERVAL: 1
     Dates: start: 20080101
  5. CARBOPLATIN. [Suspect]
     Active Substance: CARBOPLATIN
     Indication: LUNG NEOPLASM MALIGNANT
  6. CORGARD [Concomitant]
     Active Substance: NADOLOL
     Indication: SINUS TACHYCARDIA
     Dosage: 20 MG, DAILY DOSAGE 40 MG, FREQ: 2 DAY; INTERVAL:1
     Dates: start: 19880101, end: 20150901
  7. MULTIVITAMIN /00097801/ [Concomitant]
     Active Substance: VITAMINS
     Indication: PRODUCT USED FOR UNKNOWN INDICATION
     Dosage: UNK, FREQ: 1 DAY; INTERVAL:1
     Dates: start: 19520101
  8. SYMBICORT [Concomitant]
     Active Substance: BUDESONIDE\FORMOTEROL FUMARATE DIHYDRATE
     Indication: EMPHYSEMA
     Dosage: 160/4.5, 2 PUFFS, FREQ: 2 DAY; INTERVAL: 1
     Dates: start: 20130101
  9. CALCIUMD3 /00944201/ [Concomitant]
     Indication: PRODUCT USED FOR UNKNOWN INDICATION
     Dosage: UNK, FREQ: 1 DAY; INTERVAL: 1
     Dates: start: 19940101
  10. PAXIL [Concomitant]
     Active Substance: PAROXETINE HYDROCHLORIDE
     Indication: MYOCLONUS
     Dosage: 12.5 DF, DAILY DOSAGE 12.50 DF, EXTENDED RELEASE, FREQ: 1 DAY; INTERVAL: 1
     Dates: start: 19970101
  11. PROTONIX /00661201/ [Concomitant]
     Active Substance: OMEPRAZOLE
     Indication: VARICES OESOPHAGEAL
     Dosage: 40 MG, DAILY DOSAGE 40 MG, IN THE MORNING, FREQ: 1 DAY; INTERVAL: 1
     Dates: start: 20120101
  12. SPIRIVA [Concomitant]
     Active Substance: TIOTROPIUM BROMIDE MONOHYDRATE
     Indication: EMPHYSEMA
     Dosage: 18 UG, DAILY DOSAGE 18 MCG, NIGHT TIME, FREQ: 1 DAY; INTERVAL: 1
     Dates: start: 20130101
  13. CARBOPLATIN. [Suspect]
     Active Substance: CARBOPLATIN
     Indication: NON-SMALL CELL LUNG CANCER
  14. ZANTAC [Concomitant]
     Active Substance: RANITIDINE HYDROCHLORIDE
     Indication: GASTROOESOPHAGEAL REFLUX DISEASE
     Dosage: 300 MG, DAILY DOSAGE 300 MG, AT NIGHT, FREQ: 1 DAY; INTERVAL: 1
     Dates: start: 20120101
  15. D-MANNOSE [Concomitant]
     Indication: URINARY TRACT INFECTION
     Dosage: UNK
     Dates: start: 20130101
  16. KLONOPIN [Concomitant]
     Active Substance: CLONAZEPAM
     Indication: MYOCLONUS
     Dosage: 0.5 DF, DAILY DOSAGE 0.50 DF, AT BEDTIME, FREQ: 1 DAY; INTERVAL: 1
     Dates: start: 19970101
  17. ATORVASTATIN [Concomitant]
     Active Substance: ATORVASTATIN
     Indication: PRODUCT USED FOR UNKNOWN INDICATION
     Dosage: 20 MG, UNK
     Dates: start: 20151001
  18. LOVASTATIN. [Concomitant]
     Active Substance: LOVASTATIN
     Indication: BLOOD CHOLESTEROL
     Dosage: 40 MG, DAILY DOSAGE 40 MG, FREQ: 1 DAY; INTERVAL: 1
     Dates: start: 20080101

REACTIONS (7)
  - Head discomfort [Unknown]
  - Dyspnoea [Unknown]
  - Flatulence [Unknown]
  - Asthenia [Unknown]
  - Malaise [Not Recovered/Not Resolved]
  - Drug intolerance [Unknown]
  - Gait disturbance [Unknown]

NARRATIVE: CASE EVENT DATE: 20140822
